FAERS Safety Report 17222816 (Version 4)
Quarter: 2020Q1

REPORT INFORMATION
  Report Type: Spontaneous
  Country: JP (occurrence: JP)
  Receive Date: 20200102
  Receipt Date: 20200221
  Transmission Date: 20200409
  Serious: Yes (Death, Other)
  Sender: FDA-Public Use
  Company Number: JP-ASTELLAS-2019JP030114

PATIENT
  Age: 65 Year
  Sex: Female

DRUGS (11)
  1. TAZOBACTAM [Concomitant]
     Active Substance: TAZOBACTAM
     Indication: PRODUCT USED FOR UNKNOWN INDICATION
     Dosage: UNK UNK, UNKNOWN FREQ.
     Route: 065
     Dates: start: 201906, end: 201906
  2. PIPERACILLIN NA [Concomitant]
     Dosage: UNK UNK, UNKNOWN FREQ.
     Route: 065
     Dates: start: 201908, end: 201908
  3. MEROPENEM. [Concomitant]
     Active Substance: MEROPENEM
     Indication: PRODUCT USED FOR UNKNOWN INDICATION
     Dosage: UNK UNK, UNKNOWN FREQ.
     Route: 041
     Dates: start: 201906
  4. MEROPENEM. [Concomitant]
     Active Substance: MEROPENEM
     Dosage: UNK UNK, UNKNOWN FREQ.
     Route: 041
  5. XOSPATA [Suspect]
     Active Substance: GILTERITINIB
     Indication: ACUTE MYELOID LEUKAEMIA
     Route: 048
     Dates: start: 20190705, end: 20190823
  6. PIPERACILLIN NA [Concomitant]
     Dosage: UNK UNK, UNKNOWN FREQ.
     Route: 065
     Dates: start: 201907, end: 201907
  7. MEROPENEM. [Concomitant]
     Active Substance: MEROPENEM
     Dosage: UNK UNK, UNKNOWN FREQ.
     Route: 041
     Dates: start: 201907, end: 201907
  8. MICAFUNGIN SODIUM [Concomitant]
     Active Substance: MICAFUNGIN SODIUM
     Indication: PRODUCT USED FOR UNKNOWN INDICATION
     Dosage: 100 MG/DAY, UNKNOWN FREQ.
     Route: 041
     Dates: start: 20190712, end: 20190726
  9. TAZOBACTAM [Concomitant]
     Active Substance: TAZOBACTAM
     Dosage: UNK UNK, UNKNOWN FREQ.
     Route: 065
     Dates: start: 201907, end: 201907
  10. TAZOBACTAM [Concomitant]
     Active Substance: TAZOBACTAM
     Dosage: UNK UNK, UNKNOWN FREQ.
     Route: 065
     Dates: start: 201908, end: 201908
  11. PIPERACILLIN NA [Concomitant]
     Indication: PRODUCT USED FOR UNKNOWN INDICATION
     Dosage: UNK UNK, UNKNOWN FREQ.
     Route: 065
     Dates: start: 201906, end: 201906

REACTIONS (3)
  - Myocarditis [Fatal]
  - Bone marrow failure [Unknown]
  - Arrhythmia [Fatal]
